FAERS Safety Report 8428637-3 (Version None)
Quarter: 2012Q2

REPORT INFORMATION
  Report Type: 
  Country: None (occurrence: None)
  Receive Date: 20120606
  Receipt Date: 20120524
  Transmission Date: 20120825
  Serious: Yes (Other)
  Sender: FDA-Public Use
  Company Number: AUR-APL-2012-02470

PATIENT
  Age: 56 Year
  Sex: Male

DRUGS (7)
  1. METFFORMIN HYDROCHLORIDE [Suspect]
     Indication: TYPE 2 DIABETES MELLITUS
     Dates: start: 20030101, end: 20040101
  2. METFFORMIN HYDROCHLORIDE [Suspect]
     Indication: TYPE 2 DIABETES MELLITUS
     Dates: start: 20040101, end: 20080101
  3. ASPIRIN [Concomitant]
  4. INSULIN INJECTION, BIPHASIC ISOPHANE (INSULIN INJECTION, BIPHASIC) [Suspect]
     Indication: TYPE 2 DIABETES MELLITUS
     Dosage: (68, 1 D)
     Dates: start: 20080101
  5. ENALAPRIL MALEATE [Concomitant]
  6. THIAZIDES (THIAZIDES, PLAIN) [Concomitant]
  7. SIMVASTATIN [Concomitant]

REACTIONS (2)
  - GLYCOSYLATED HAEMOGLOBIN INCREASED [None]
  - DIABETES MELLITUS INADEQUATE CONTROL [None]
